FAERS Safety Report 25884982 (Version 1)
Quarter: 2025Q4

REPORT INFORMATION
  Report Type: Spontaneous
  Country: US (occurrence: None)
  Receive Date: 20251004
  Receipt Date: 20251004
  Transmission Date: 20260118
  Serious: Yes (Other)
  Sender: FDA-CTU
  Company Number: None

PATIENT
  Age: 68 Year
  Sex: Male
  Weight: 90.9 kg

DRUGS (6)
  1. CEFUROXIME AXETIL [Suspect]
     Active Substance: CEFUROXIME AXETIL
     Indication: Urinary tract infection
     Dosage: OTHER QUANTITY : 1 TABLET(S);?FREQUENCY : TWICE A DAY;?
     Route: 048
     Dates: start: 20251003, end: 20251004
  2. RINVOQ [Concomitant]
     Active Substance: UPADACITINIB
  3. Rapatha 140mg [Concomitant]
  4. ALLOPURINOL [Concomitant]
     Active Substance: ALLOPURINOL
  5. Singular 10mg [Concomitant]
  6. XYZAL [Concomitant]
     Active Substance: LEVOCETIRIZINE DIHYDROCHLORIDE

REACTIONS (3)
  - Vomiting [None]
  - Tremor [None]
  - Dizziness [None]

NARRATIVE: CASE EVENT DATE: 20251003
